FAERS Safety Report 4977608-8 (Version None)
Quarter: 2006Q2

REPORT INFORMATION
  Report Type: 
  Country: None (occurrence: None)
  Receive Date: 20060414
  Receipt Date: 20060329
  Transmission Date: 20061013
  Serious: Yes (Other)
  Sender: FDA-Public Use
  Company Number: 13552

PATIENT
  Age: 44 Year
  Sex: Female
  Weight: 74 kg

DRUGS (15)
  1. METHOTREXATE [Suspect]
     Indication: RHEUMATOID ARTHRITIS
     Dosage: 25 MG WEEKLY IM
     Route: 030
     Dates: start: 20050920, end: 20051129
  2. METHOTREXATE [Suspect]
     Indication: RHEUMATOID ARTHRITIS
     Dosage: 15 MG WEEKLY IM
     Route: 030
     Dates: start: 20051130, end: 20060118
  3. CO-PROXAMOL [Concomitant]
  4. POLYVINYL ALCOHOL EYE DROPS [Concomitant]
  5. FOLIC ACID [Concomitant]
  6. ERYTHROMYCIN [Concomitant]
  7. PREDNISOLONE [Concomitant]
  8. CARMELLOSE SODIUM [Concomitant]
  9. DESOGESTREL AND ETHINYL ESTRADIOL [Concomitant]
  10. ADCAL-D3 [Concomitant]
  11. ISPAGHULA HUSK [Concomitant]
  12. SALIVIX [Concomitant]
  13. FERROUS SULFATE TAB [Concomitant]
  14. IBUPROFEN GEL [Concomitant]
  15. INFLUENZA VACCINE [Concomitant]

REACTIONS (1)
  - PAIN IN EXTREMITY [None]
